FAERS Safety Report 8198002-5 (Version None)
Quarter: 2012Q1

REPORT INFORMATION
  Report Type: 
  Country: None (occurrence: None)
  Receive Date: 20120309
  Receipt Date: 20120110
  Transmission Date: 20120608
  Serious: No
  Sender: FDA-Public Use
  Company Number: US-AMGEN-USASP2012001654

PATIENT
  Age: 50 Year
  Sex: Male

DRUGS (2)
  1. LUPRON [Concomitant]
  2. XGEVA [Suspect]
     Indication: METASTASES TO BONE
     Dosage: UNK
     Dates: start: 20111214

REACTIONS (2)
  - PAIN [None]
  - BONE PAIN [None]
